FAERS Safety Report 4431116-1 (Version None)
Quarter: 2004Q3

REPORT INFORMATION
  Report Type: 
  Country: None (occurrence: None)
  Receive Date: 20040817
  Receipt Date: 20040811
  Transmission Date: 20050211
  Serious: Yes (Hospitalization)
  Sender: FDA-Public Use
  Company Number: 2004CG01546

PATIENT
  Age: 57 Year
  Sex: Female

DRUGS (13)
  1. OMEPRAZOLE [Suspect]
     Dates: start: 20040701, end: 20040714
  2. DIPRIVAN [Suspect]
  3. LASIX [Suspect]
     Dates: start: 20040605, end: 20040711
  4. TARGOCID [Suspect]
     Dates: start: 20040611, end: 20040714
  5. PERFALGAN [Suspect]
     Dates: start: 20040525, end: 20040714
  6. ASPEGIC 325 [Suspect]
  7. IMOVANE [Suspect]
  8. SECTRAL [Suspect]
  9. CALCIPARINE [Suspect]
  10. ROCEPHIN [Suspect]
     Dates: start: 20040611, end: 20040714
  11. NORADRENALINE [Suspect]
  12. DOBUTREX [Suspect]
  13. MORPHINE [Suspect]

REACTIONS (1)
  - DERMATITIS BULLOUS [None]
